FAERS Safety Report 8445730-X (Version None)
Quarter: 2012Q2

REPORT INFORMATION
  Report Type: 
  Country: None (occurrence: None)
  Receive Date: 20120618
  Receipt Date: 20110923
  Transmission Date: 20120825
  Serious: Yes (Death, Life-Threatening, Hospitalization, Other)
  Sender: FDA-Public Use
  Company Number: GB-GLAXOSMITHKLINE-B0744292A

PATIENT
  Age: 6 Year
  Sex: Female
  Weight: 18 kg

DRUGS (5)
  1. ALEMTUZUMAB [Suspect]
     Indication: BONE MARROW FAILURE
     Dosage: .3MGK PER DAY
     Route: 065
  2. METHOTREXATE SODIUM [Suspect]
     Indication: PROPHYLAXIS AGAINST GRAFT VERSUS HOST DISEASE
     Dosage: 7.4MG PER DAY
     Route: 042
     Dates: start: 20101121, end: 20101124
  3. BUSULFAN [Suspect]
     Indication: BONE MARROW FAILURE
     Dosage: 14MGK PER DAY
     Route: 048
     Dates: start: 20101108, end: 20101111
  4. CYCLOPHOSPHAMIDE [Suspect]
     Indication: BONE MARROW FAILURE
     Dosage: 200MGK PER DAY
     Route: 042
     Dates: start: 20101112, end: 20101115
  5. CYCLOSPORINE [Suspect]
     Indication: PROPHYLAXIS AGAINST GRAFT VERSUS HOST DISEASE
     Route: 065

REACTIONS (19)
  - WEIGHT DECREASED [None]
  - PAIN [None]
  - FUNGAL INFECTION [None]
  - FEBRILE NEUTROPENIA [None]
  - POSTERIOR REVERSIBLE ENCEPHALOPATHY SYNDROME [None]
  - VENOOCCLUSIVE DISEASE [None]
  - GASTROINTESTINAL TOXICITY [None]
  - RESPIRATORY DISTRESS [None]
  - CYTOMEGALOVIRUS INFECTION [None]
  - URINARY TRACT INFECTION [None]
  - DEEP VEIN THROMBOSIS [None]
  - IDIOPATHIC PNEUMONIA SYNDROME [None]
  - MUCOSAL INFLAMMATION [None]
  - COUGH [None]
  - PNEUMONIA CYTOMEGALOVIRAL [None]
  - METAPNEUMOVIRUS INFECTION [None]
  - CARDIO-RESPIRATORY ARREST [None]
  - PERIORBITAL OEDEMA [None]
  - MASTOID DISORDER [None]
